FAERS Safety Report 15467871 (Version 2)
Quarter: 2018Q4

REPORT INFORMATION
  Report Type: Spontaneous
  Country: US (occurrence: US)
  Receive Date: 20181005
  Receipt Date: 20181204
  Transmission Date: 20190204
  Serious: No
  Sender: FDA-Public Use
  Company Number: US-PFIZER INC-2018397833

PATIENT
  Age: 29 Year
  Sex: Female

DRUGS (1)
  1. GENOTROPIN MQ [Suspect]
     Active Substance: SOMATROPIN
     Dosage: 0.4 MG, DAILY
     Dates: start: 20180903

REACTIONS (5)
  - Pre-existing condition improved [Unknown]
  - Weight decreased [Unknown]
  - Product dose omission [Unknown]
  - Energy increased [Unknown]
  - Therapeutic response unexpected [Unknown]
